FAERS Safety Report 23698372 (Version 1)
Quarter: 2024Q2

REPORT INFORMATION
  Report Type: Spontaneous
  Country: BR (occurrence: BR)
  Receive Date: 20240402
  Receipt Date: 20240402
  Transmission Date: 20240715
  Serious: Yes (Other)
  Sender: FDA-Public Use
  Company Number: BR-ORGANON-O2404BRA000184

PATIENT
  Age: 26 Year
  Sex: Female
  Weight: 63 kg

DRUGS (3)
  1. ETONOGESTREL [Suspect]
     Active Substance: ETONOGESTREL
     Indication: Endometriosis
     Dosage: 1 IMPLANT LEFT ARM
     Route: 059
     Dates: start: 20220329
  2. DESDUO [Concomitant]
     Indication: Depression
     Dosage: 1 DOSAGE FORM, QD
     Route: 065
     Dates: start: 2019
  3. VITAMINS NOS [Concomitant]
     Active Substance: VITAMINS
     Dosage: UNK
     Route: 065

REACTIONS (6)
  - Metabolic surgery [Unknown]
  - Dysmenorrhoea [Unknown]
  - Progesterone decreased [Unknown]
  - Heavy menstrual bleeding [Recovered/Resolved]
  - Menstruation irregular [Unknown]
  - Product use in unapproved indication [Unknown]

NARRATIVE: CASE EVENT DATE: 20230301
